FAERS Safety Report 5806431-7 (Version None)
Quarter: 2008Q3

REPORT INFORMATION
  Report Type: 
  Country: None (occurrence: None)
  Receive Date: 20080710
  Receipt Date: 20080702
  Transmission Date: 20090109
  Serious: Yes (Death, Other)
  Sender: FDA-Public Use
  Company Number: US-ELI_LILLY_AND_COMPANY-US200806005194

PATIENT
  Age: 55 Year
  Sex: Female

DRUGS (12)
  1. CYMBALTA [Suspect]
     Dosage: 60 MG, 3/D
     Dates: start: 20060516, end: 20061226
  2. CYMBALTA [Suspect]
     Dosage: 60 MG, DAILY (1/D)
     Dates: start: 20061226, end: 20070701
  3. CYMBALTA [Suspect]
     Dosage: 60 MG, 3/D
     Dates: start: 20070701
  4. CYMBALTA [Suspect]
     Dosage: 90 MG, UNK
  5. ALBUTEROL [Concomitant]
     Dosage: 1 D/F, EVERY 3 HRS
  6. LASIX [Concomitant]
     Dosage: 40 MG, 2/D
  7. COLACE [Concomitant]
     Dosage: 100 MG, DAILY (1/D)
  8. DULCOLAX [Concomitant]
     Dosage: 10 MG, DAILY (1/D)
  9. GENTAMICIN [Concomitant]
     Dosage: 1 D/F, 2/D
     Route: 047
  10. IMITREX [Concomitant]
     Indication: MIGRAINE
     Dosage: 50 MG, UNK
  11. FLEXERIL [Concomitant]
     Dosage: 10 MG, 2/D
  12. DYAZIDE [Concomitant]
     Dosage: 37.25 MG, DAILY (1/D)

REACTIONS (4)
  - FEELING JITTERY [None]
  - OVERDOSE [None]
  - PNEUMONIA [None]
  - SEPSIS [None]
